FAERS Safety Report 15584691 (Version 2)
Quarter: 2018Q4

REPORT INFORMATION
  Report Type: Spontaneous
  Country: US (occurrence: US)
  Receive Date: 20181102
  Receipt Date: 20181113
  Transmission Date: 20190205
  Serious: Yes (Death, Hospitalization, Other)
  Sender: FDA-Public Use
  Company Number: US-ASTRAZENECA-2018SF43054

PATIENT
  Age: 73 Year
  Sex: Female
  Weight: 68.2 kg

DRUGS (9)
  1. PREDNISONE. [Concomitant]
     Active Substance: PREDNISONE
     Route: 048
     Dates: start: 20181008, end: 20181015
  2. TAGRISSO [Suspect]
     Active Substance: OSIMERTINIB
     Indication: NON-SMALL CELL LUNG CANCER METASTATIC
     Route: 048
     Dates: start: 201708, end: 201711
  3. TYLENOL [Concomitant]
     Active Substance: ACETAMINOPHEN
  4. MORPHINE SULFATE. [Concomitant]
     Active Substance: MORPHINE SULFATE
     Dates: start: 20180717, end: 20181015
  5. GABAPENTIN. [Concomitant]
     Active Substance: GABAPENTIN
  6. ENOXAPARIN [Concomitant]
     Active Substance: ENOXAPARIN
     Dates: start: 20180320, end: 20181015
  7. LORAZEPAM. [Concomitant]
     Active Substance: LORAZEPAM
     Dates: start: 20180619, end: 20181015
  8. TAGRISSO [Suspect]
     Active Substance: OSIMERTINIB
     Indication: NON-SMALL CELL LUNG CANCER METASTATIC
     Route: 048
     Dates: start: 20180928
  9. PREDNISONE. [Concomitant]
     Active Substance: PREDNISONE
     Dates: start: 20180707

REACTIONS (7)
  - Malignant neoplasm progression [Unknown]
  - Death [Fatal]
  - Respiratory failure [Unknown]
  - Infection [Unknown]
  - Pneumonitis [Unknown]
  - Acquired gene mutation [Unknown]
  - Drug resistance [Unknown]

NARRATIVE: CASE EVENT DATE: 20181008
